FAERS Safety Report 21655507 (Version 3)
Quarter: 2025Q3

REPORT INFORMATION
  Report Type: Spontaneous
  Country: EU (occurrence: EU)
  Receive Date: 20221129
  Receipt Date: 20250730
  Transmission Date: 20251021
  Serious: Yes (Hospitalization, Other)
  Sender: NOVARTIS
  Company Number: EU-002147023-NVSC2022HU264794

PATIENT
  Sex: Female

DRUGS (4)
  1. RIBOCICLIB [Suspect]
     Active Substance: RIBOCICLIB
     Indication: Invasive lobular breast carcinoma
     Dosage: 600 MG, QD (DAILY FOR 3 WEEKS, THEN 1 WEEK BREAK)
     Route: 065
     Dates: start: 2020
  2. RIBOCICLIB [Suspect]
     Active Substance: RIBOCICLIB
     Dosage: 400 MG, QD (DAILY FOR 3 WEEKS, THEN 1 WEEK BREAK)
     Route: 065
     Dates: start: 202209
  3. LETROZOLE [Suspect]
     Active Substance: LETROZOLE
     Indication: Invasive lobular breast carcinoma
     Dosage: 2.5 MG, QD
     Route: 065
     Dates: start: 2020
  4. LETROZOLE [Suspect]
     Active Substance: LETROZOLE
     Route: 065
     Dates: start: 2022

REACTIONS (13)
  - Acute hepatic failure [Recovered/Resolved]
  - Hepatitis cholestatic [Unknown]
  - Jaundice [Recovered/Resolved]
  - Chronic hepatitis B [Unknown]
  - Leukopenia [Unknown]
  - Neutropenia [Recovered/Resolved]
  - Intra-abdominal fluid collection [Recovering/Resolving]
  - Aspartate aminotransferase increased [Recovered/Resolved]
  - Alanine aminotransferase increased [Recovered/Resolved]
  - Immunosuppression [Unknown]
  - Pleural fluid analysis abnormal [Recovering/Resolving]
  - Fat tissue increased [Unknown]
  - Blood calcium abnormal [Recovered/Resolved]

NARRATIVE: CASE EVENT DATE: 20200101
